FAERS Safety Report 7395381-3 (Version None)
Quarter: 2011Q2

REPORT INFORMATION
  Report Type: 
  Country: None (occurrence: None)
  Receive Date: 20110405
  Receipt Date: 20110322
  Transmission Date: 20111010
  Serious: Yes (Other)
  Sender: FDA-Public Use
  Company Number: AR-JNJFOC-20110309748

PATIENT
  Age: 68 Year
  Sex: Female

DRUGS (6)
  1. SERTRALINA MERCK [Concomitant]
     Route: 065
  2. AKATINOL MEMANTINA [Concomitant]
  3. ATENOLOL [Concomitant]
     Route: 065
  4. BROMAZEPAM [Suspect]
     Indication: PRODUCT USED FOR UNKNOWN INDICATION
     Route: 065
  5. INFLIXIMAB, RECOMBINANT [Suspect]
     Indication: PRODUCT USED FOR UNKNOWN INDICATION
     Route: 042
  6. ASPIRIN [Concomitant]
     Route: 065

REACTIONS (3)
  - MENTAL DISORDER [None]
  - CONTUSION [None]
  - HALLUCINATION, VISUAL [None]
